FAERS Safety Report 12170660 (Version 1)
Quarter: 2016Q1

REPORT INFORMATION
  Report Type: Spontaneous
  Country: US (occurrence: US)
  Receive Date: 20160311
  Receipt Date: 20160311
  Transmission Date: 20160526
  Serious: Yes (Death)
  Sender: FDA-Public Use
  Company Number: US-ROCHE-1724465

PATIENT
  Sex: Female

DRUGS (17)
  1. QVAR [Concomitant]
     Active Substance: BECLOMETHASONE DIPROPIONATE
  2. PROAIR HFA [Concomitant]
     Active Substance: ALBUTEROL SULFATE
  3. POTASSIUM CHLORIDE. [Concomitant]
     Active Substance: POTASSIUM CHLORIDE
  4. ALPRAZOLAM. [Concomitant]
     Active Substance: ALPRAZOLAM
  5. SPIRONOLACTONE. [Concomitant]
     Active Substance: SPIRONOLACTONE
  6. XIFAXAN [Concomitant]
     Active Substance: RIFAXIMIN
  7. URSODIOL. [Concomitant]
     Active Substance: URSODIOL
  8. SERTRALINE HCL [Concomitant]
     Active Substance: SERTRALINE HYDROCHLORIDE
  9. DULERA [Concomitant]
     Active Substance: FORMOTEROL FUMARATE DIHYDRATE\MOMETASONE FUROATE
  10. FUROSEMIDE. [Concomitant]
     Active Substance: FUROSEMIDE
  11. FENTANYL. [Concomitant]
     Active Substance: FENTANYL
  12. MONTELUKAST SODIUM. [Concomitant]
     Active Substance: MONTELUKAST SODIUM
  13. MIRTAZAPINE. [Concomitant]
     Active Substance: MIRTAZAPINE
  14. LANSOPRAZOLE. [Concomitant]
     Active Substance: LANSOPRAZOLE
  15. LACTULOSE. [Concomitant]
     Active Substance: LACTULOSE
     Route: 065
  16. XOLAIR [Suspect]
     Active Substance: OMALIZUMAB
     Indication: ASTHMA
     Route: 058
     Dates: start: 201601
  17. PREDNISONE. [Concomitant]
     Active Substance: PREDNISONE

REACTIONS (1)
  - Death [Fatal]
